FAERS Safety Report 9001130 (Version 1)
Quarter: 2013Q1

REPORT INFORMATION
  Report Type: Spontaneous
  Country: US (occurrence: None)
  Receive Date: 20130103
  Receipt Date: 20130103
  Transmission Date: 20140127
  Serious: No
  Sender: FDA-Public Use
  Company Number: None

PATIENT
  Sex: Female

DRUGS (7)
  1. QUETIAPINE [Suspect]
     Indication: POST-TRAUMATIC STRESS DISORDER
     Dosage: 25 MG  1/2 BID AND ONE HS  PO
     Route: 048
  2. QUETIAPINE [Suspect]
     Indication: ANXIETY
     Dosage: 25 MG  1/2 BID AND ONE HS  PO
     Route: 048
  3. QUETIAPINE [Suspect]
     Dosage: 25 MG  1/2 BID AND ONE HS  PO
     Route: 048
  4. QUETIAPINE [Suspect]
     Dosage: 25 MG  1/2 BID AND ONE HS  PO
     Route: 048
  5. QUETIAPINE [Suspect]
  6. ZONISAMIDE [Concomitant]
  7. ALPRAZOLAM [Concomitant]

REACTIONS (3)
  - Product substitution issue [None]
  - Treatment failure [None]
  - Product quality issue [None]
